FAERS Safety Report 6767781-3 (Version None)
Quarter: 2010Q2

REPORT INFORMATION
  Report Type: 
  Country: None (occurrence: None)
  Receive Date: 20100614
  Receipt Date: 20100601
  Transmission Date: 20101027
  Serious: Yes (Other)
  Sender: FDA-Public Use
  Company Number: PHHY2010US35725

PATIENT
  Sex: Female

DRUGS (11)
  1. DIOVAN [Suspect]
  2. DIOVAN [Suspect]
  3. DIOVAN HCT [Suspect]
  4. ATENOLOL [Suspect]
  5. XANAX [Concomitant]
  6. VITAMIN B [Concomitant]
  7. VITAMIN C [Concomitant]
  8. PLAVIX [Concomitant]
  9. MORTENOLOL [Concomitant]
  10. VITAMINS [Concomitant]
  11. PEPCID [Concomitant]

REACTIONS (7)
  - BLOOD CREATININE INCREASED [None]
  - BLOOD POTASSIUM INCREASED [None]
  - CARDIAC OPERATION [None]
  - MITRAL VALVE INCOMPETENCE [None]
  - PERIPHERAL VASCULAR DISORDER [None]
  - RENAL DISORDER [None]
  - RENAL IMPAIRMENT [None]
